FAERS Safety Report 12268822 (Version 1)
Quarter: 2016Q2

REPORT INFORMATION
  Report Type: Report from Study
  Country: ES (occurrence: ES)
  Receive Date: 20160414
  Receipt Date: 20160414
  Transmission Date: 20160815
  Serious: Yes (Death, Hospitalization)
  Sender: FDA-Public Use
  Company Number: ES-CELGENEUS-ESP-2015012405

PATIENT
  Age: 38 Year
  Sex: Female

DRUGS (12)
  1. ABRAXANE [Suspect]
     Active Substance: PACLITAXEL
     Route: 041
     Dates: end: 20150107
  2. MOTILIUM [Concomitant]
     Active Substance: DOMPERIDONE
     Indication: PROPHYLAXIS AGAINST GASTROINTESTINAL ULCER
     Route: 048
     Dates: end: 20150108
  3. OMEPRAZOLE. [Concomitant]
     Active Substance: OMEPRAZOLE
     Indication: PROPHYLAXIS AGAINST GASTROINTESTINAL ULCER
     Dosage: 15 MILLIGRAM
     Route: 048
     Dates: end: 20150108
  4. ESCITALOPRAM [Concomitant]
     Active Substance: ESCITALOPRAM OXALATE
     Indication: SEDATIVE THERAPY
     Dosage: 5 MILLIGRAM
     Route: 048
     Dates: end: 20150108
  5. ABRAXANE [Suspect]
     Active Substance: PACLITAXEL
     Indication: BREAST CANCER
     Route: 041
     Dates: start: 20141031
  6. ONDANSETRON [Concomitant]
     Active Substance: ONDANSETRON
     Indication: ANTIEMETIC SUPPORTIVE CARE
     Dosage: 10 MILLIGRAM
     Route: 048
     Dates: end: 20150108
  7. DUPHALAC [Concomitant]
     Active Substance: LACTULOSE
     Indication: LAXATIVE SUPPORTIVE CARE
     Route: 048
     Dates: end: 20150108
  8. ABRAXANE [Suspect]
     Active Substance: PACLITAXEL
     Dosage: 4 MILLIGRAM
     Route: 041
     Dates: end: 20141223
  9. FORTECORTIN [Concomitant]
     Active Substance: DEXAMETHASONE
     Indication: OEDEMA
     Dosage: 75 MILLIGRAM
     Route: 048
     Dates: end: 20150108
  10. LYRICA [Concomitant]
     Active Substance: PREGABALIN
     Indication: ANALGESIC THERAPY
     Dosage: 20 MILLIGRAM
     Route: 048
     Dates: end: 20150108
  11. VALIUM [Concomitant]
     Active Substance: DIAZEPAM
     Indication: ANXIETY
     Dosage: 8 MILLIGRAM
     Route: 048
     Dates: end: 20150108
  12. SEVREDOL [Concomitant]
     Active Substance: MORPHINE
     Indication: SEDATIVE THERAPY
     Route: 048
     Dates: end: 20150108

REACTIONS (2)
  - Psychomotor hyperactivity [Not Recovered/Not Resolved]
  - Breast cancer metastatic [Fatal]

NARRATIVE: CASE EVENT DATE: 20150107
